FAERS Safety Report 13922199 (Version 1)
Quarter: 2017Q3

REPORT INFORMATION
  Report Type: Spontaneous
  Country: SI (occurrence: SI)
  Receive Date: 20170830
  Receipt Date: 20170830
  Transmission Date: 20171127
  Serious: Yes (Other)
  Sender: FDA-Public Use
  Company Number: SI-BAYER-2017-160472

PATIENT
  Sex: Female

DRUGS (1)
  1. STIVARGA [Suspect]
     Active Substance: REGORAFENIB
     Indication: COLORECTAL CANCER METASTATIC
     Dosage: UNK
     Dates: start: 201401, end: 201501

REACTIONS (16)
  - Colorectal cancer metastatic [None]
  - Ascites [None]
  - Skin exfoliation [None]
  - Weight decreased [None]
  - Transaminases increased [None]
  - Metastases to lung [None]
  - Dysphonia [None]
  - Abdominal tenderness [None]
  - Back pain [None]
  - Abdominal pain [None]
  - Icterus index increased [None]
  - Metastases to liver [None]
  - General physical health deterioration [None]
  - Blood pressure increased [None]
  - Palmoplantar keratoderma [None]
  - Rash generalised [None]

NARRATIVE: CASE EVENT DATE: 2014
